FAERS Safety Report 5612345-8 (Version None)
Quarter: 2008Q1

REPORT INFORMATION
  Report Type: 
  Country: None (occurrence: None)
  Receive Date: 20080201
  Receipt Date: 20080201
  Transmission Date: 20080703
  Serious: No
  Sender: FDA-Public Use
  Company Number: None

PATIENT
  Sex: Female

DRUGS (1)
  1. PROZAC [Suspect]
     Dosage: 40 MG 1 TAB QD

REACTIONS (2)
  - BLOOD PROLACTIN INCREASED [None]
  - PHARMACEUTICAL PRODUCT COMPLAINT [None]
